FAERS Safety Report 9376557 (Version 1)
Quarter: 2013Q3

REPORT INFORMATION
  Report Type: Spontaneous
  Country: US (occurrence: US)
  Receive Date: 20130701
  Receipt Date: 20130701
  Transmission Date: 20140515
  Serious: No
  Sender: FDA-Public Use
  Company Number: US-PFIZER INC-2013193787

PATIENT
  Sex: Male

DRUGS (2)
  1. EFFEXOR [Suspect]
     Dosage: 75 MG/DAY
  2. EFFEXOR XR [Suspect]
     Dosage: 75 MG/DAY

REACTIONS (1)
  - Dry mouth [Unknown]
